FAERS Safety Report 8156080-3 (Version None)
Quarter: 2012Q1

REPORT INFORMATION
  Report Type: 
  Country: None (occurrence: None)
  Receive Date: 20120216
  Receipt Date: 20120206
  Transmission Date: 20120608
  Serious: Yes (Hospitalization)
  Sender: FDA-Public Use
  Company Number: MPS1-1000634

PATIENT
  Age: 4 Year
  Sex: Male
  Weight: 14 kg

DRUGS (1)
  1. ALDURAZYME [Suspect]
     Indication: MUCOPOLYSACCHARIDOSIS I
     Dosage: 8 VIALS, Q4W, INTRAVENOUS
     Route: 042
     Dates: start: 20090124

REACTIONS (5)
  - GASTROINTESTINAL INFECTION [None]
  - ASTHMA [None]
  - NASAL TURBINATE HYPERTROPHY [None]
  - TONSILLAR HYPERTROPHY [None]
  - PNEUMONIA [None]
